FAERS Safety Report 4738946-7 (Version None)
Quarter: 2005Q3

REPORT INFORMATION
  Report Type: 
  Country: None (occurrence: None)
  Receive Date: 20050801
  Receipt Date: 20040623
  Transmission Date: 20060218
  Serious: Yes (Life-Threatening, Hospitalization)
  Sender: FDA-Public Use
  Company Number: 207434

PATIENT
  Age: 66 Year
  Sex: Female

DRUGS (3)
  1. HERCEPTIN [Suspect]
     Indication: BREAST CANCER METASTATIC
     Dosage: 4 MG/KG, SINGLE, INTRAVENOUS; 2 MG/KG, 1/WEEK, INTRAVENOUS;  4 MG/KG, SINGLE, INTRAVENOUS
     Route: 042
     Dates: start: 20040423, end: 20040423
  2. HERCEPTIN [Suspect]
     Indication: BREAST CANCER METASTATIC
     Dosage: 4 MG/KG, SINGLE, INTRAVENOUS; 2 MG/KG, 1/WEEK, INTRAVENOUS;  4 MG/KG, SINGLE, INTRAVENOUS
     Route: 042
     Dates: start: 20040618, end: 20040618
  3. HERCEPTIN [Suspect]
     Indication: BREAST CANCER METASTATIC
     Dosage: 4 MG/KG, SINGLE, INTRAVENOUS; 2 MG/KG, 1/WEEK, INTRAVENOUS;  4 MG/KG, SINGLE, INTRAVENOUS
     Route: 042
     Dates: start: 20040521

REACTIONS (1)
  - CARDIO-RESPIRATORY ARREST [None]
